FAERS Safety Report 4808568-8 (Version None)
Quarter: 2005Q4

REPORT INFORMATION
  Report Type: 
  Country: None (occurrence: None)
  Receive Date: 20051025
  Receipt Date: 20051021
  Transmission Date: 20060501
  Serious: Yes (Death, Hospitalization)
  Sender: FDA-Public Use
  Company Number: US-GLAXOSMITHKLINE-A0579160A

PATIENT
  Age: 32 Year
  Sex: Male

DRUGS (1)
  1. VALTREX [Suspect]
     Dosage: 500MG THREE TIMES PER DAY
     Route: 048
     Dates: start: 20001212, end: 20011201

REACTIONS (6)
  - BEDRIDDEN [None]
  - DEATH [None]
  - DEHYDRATION [None]
  - OVERDOSE [None]
  - RENAL FAILURE [None]
  - RENAL FAILURE CHRONIC [None]
